FAERS Safety Report 18027990 (Version 1)
Quarter: 2020Q3

REPORT INFORMATION
  Report Type: Report from Study
  Country: FR (occurrence: FR)
  Receive Date: 20200716
  Receipt Date: 20200716
  Transmission Date: 20201103
  Serious: Yes (Other)
  Sender: FDA-Public Use
  Company Number: FR-TAKEDA-2020TUS030782

PATIENT
  Age: 85 Year
  Sex: Female

DRUGS (3)
  1. BORTEZOMIB. [Suspect]
     Active Substance: BORTEZOMIB
     Indication: PLASMA CELL MYELOMA
     Dosage: 1.3 MILLIGRAM/SQ. METER, 1/WEEK
     Route: 065
     Dates: end: 20180523
  2. MELPHALAN. [Suspect]
     Active Substance: MELPHALAN
     Indication: PLASMA CELL MYELOMA
     Dosage: 9 MILLIGRAM/SQ. METER, 4/WEEK
     Route: 065
     Dates: end: 20180523
  3. PREDNISONE. [Suspect]
     Active Substance: PREDNISONE
     Indication: PLASMA CELL MYELOMA
     Dosage: 60 MILLIGRAM/SQ. METER, 4/WEEK
     Route: 065
     Dates: end: 20180523

REACTIONS (4)
  - Blood disorder [Unknown]
  - Urinary incontinence [Unknown]
  - Vomiting [Unknown]
  - Diarrhoea [Unknown]

NARRATIVE: CASE EVENT DATE: 20180522
